FAERS Safety Report 13965204 (Version 1)
Quarter: 2017Q3

REPORT INFORMATION
  Report Type: Spontaneous
  Country: US (occurrence: US)
  Receive Date: 20170913
  Receipt Date: 20170913
  Transmission Date: 20171128
  Serious: Yes (Hospitalization)
  Sender: FDA-Public Use
  Company Number: US-LEADIANT BIOSCIENCES INC-2017STPI000660

PATIENT
  Age: 37 Year
  Sex: Male

DRUGS (3)
  1. MATULANE [Suspect]
     Active Substance: PROCARBAZINE HYDROCHLORIDE
     Indication: BRAIN NEOPLASM MALIGNANT
     Dosage: 150 MG, OTHER
     Route: 048
     Dates: start: 20170725
  2. LOMUSTINE. [Concomitant]
     Active Substance: LOMUSTINE
  3. VINCRISTINE [Concomitant]
     Active Substance: VINCRISTINE

REACTIONS (2)
  - Pneumonia [Unknown]
  - Renal failure [Unknown]

NARRATIVE: CASE EVENT DATE: 20170828
